FAERS Safety Report 22588373 (Version 1)
Quarter: 2023Q2

REPORT INFORMATION
  Report Type: Spontaneous
  Country: EG (occurrence: EG)
  Receive Date: 20230612
  Receipt Date: 20230612
  Transmission Date: 20230722
  Serious: Yes (Hospitalization)
  Sender: FDA-Public Use
  Company Number: EG-ABBOTT-2023A-1365034

PATIENT
  Sex: Female
  Weight: 55 kg

DRUGS (3)
  1. CLARITHROMYCIN [Suspect]
     Active Substance: CLARITHROMYCIN
     Indication: Influenza
     Dosage: 500MG ONCE EVERY 12 HOURS ORALLY
     Route: 048
     Dates: start: 20230506, end: 20230508
  2. ERGOTAMINE [Suspect]
     Active Substance: CAFFEINE\ERGOTAMINE\ERGOTAMINE TARTRATE
     Indication: Migraine
     Dosage: 1MG ONCE EVERY 12 HOURS ORALLY?DURATION: 3 YEARS
     Route: 048
     Dates: start: 20210510, end: 20230508
  3. THEOPHYLLINE [Concomitant]
     Active Substance: THEOPHYLLINE
     Indication: Asthma prophylaxis
     Dosage: 200MG ONCE DAILY ORALLY
     Route: 048
     Dates: start: 2023

REACTIONS (1)
  - Ischaemic stroke [Not Recovered/Not Resolved]

NARRATIVE: CASE EVENT DATE: 20230508
